FAERS Safety Report 9803124 (Version 1)
Quarter: 2014Q1

REPORT INFORMATION
  Report Type: Spontaneous
  Country: US (occurrence: None)
  Receive Date: 20140107
  Receipt Date: 20140107
  Transmission Date: 20141002
  Serious: Yes (Life-Threatening, Hospitalization)
  Sender: FDA-Public Use
  Company Number: None

PATIENT
  Age: 43 Year
  Sex: Female
  Weight: 77.11 kg

DRUGS (1)
  1. LISINOPRIL [Suspect]
     Indication: HYPERTENSION
     Dosage: 1 PILL PER DAY ONCE DAILY
     Route: 048
     Dates: start: 20120801, end: 20131206

REACTIONS (3)
  - Food allergy [None]
  - Dyspnoea [None]
  - Drug hypersensitivity [None]
